FAERS Safety Report 4347064-1 (Version None)
Quarter: 2004Q2

REPORT INFORMATION
  Report Type: 
  Country: None (occurrence: None)
  Receive Date: 20040422
  Receipt Date: 20040407
  Transmission Date: 20050107
  Serious: Yes (Hospitalization)
  Sender: FDA-Public Use
  Company Number: BR-JNJFOC-20040401980

PATIENT
  Age: 30 Year
  Sex: Male
  Weight: 63 kg

DRUGS (1)
  1. ASCARIDIL (LEVAMISOLE HYDROCHLORIDE) TABLETS [Suspect]
     Indication: ASCARIASIS
     Dosage: 150 MG, ORAL
     Route: 048
     Dates: start: 20040324

REACTIONS (5)
  - DISORIENTATION [None]
  - DIZZINESS [None]
  - DYSPNOEA [None]
  - LOSS OF CONSCIOUSNESS [None]
  - PALPITATIONS [None]
